FAERS Safety Report 6979937-5 (Version None)
Quarter: 2010Q3

REPORT INFORMATION
  Report Type: 
  Country: None (occurrence: None)
  Receive Date: 20100914
  Receipt Date: 20100908
  Transmission Date: 20110219
  Serious: Yes (Hospitalization, Other)
  Sender: FDA-Public Use
  Company Number: US-WYE-H14163710

PATIENT
  Age: 56 Year
  Sex: Male
  Weight: 73.1 kg

DRUGS (8)
  1. TORISEL [Suspect]
     Indication: METASTATIC RENAL CELL CARCINOMA
     Dosage: 25 MG, DAYS 1, 8, 15, 22 EVERY 28 DAYS, TOTAL DOSE ADMINISTERED THIS COURSE 75 MG
     Route: 042
     Dates: start: 20091113, end: 20100219
  2. TOPROL-XL [Concomitant]
  3. COMPAZINE [Concomitant]
  4. LISINOPRIL [Concomitant]
  5. ACETAMINOPHEN [Concomitant]
  6. ATIVAN [Concomitant]
  7. BEVACIZUMAB [Concomitant]
     Indication: METASTATIC RENAL CELL CARCINOMA
     Dosage: 10 MG/KG, DAY 1, 15, TOTAL DOSE ADMINISTERED THIS COURSE 1515 MG
     Route: 042
     Dates: start: 20091113, end: 20100219
  8. HYDRODIURIL [Concomitant]

REACTIONS (5)
  - BLOOD CREATININE ABNORMAL [None]
  - DEHYDRATION [None]
  - DYSPNOEA [None]
  - FATIGUE [None]
  - MUSCULAR WEAKNESS [None]
